FAERS Safety Report 5452916-5 (Version None)
Quarter: 2007Q3

REPORT INFORMATION
  Report Type: 
  Country: None (occurrence: None)
  Receive Date: 20070914
  Receipt Date: 20070906
  Transmission Date: 20080115
  Serious: Yes (Other)
  Sender: FDA-Public Use
  Company Number: B0486933A

PATIENT
  Age: 37 Year
  Weight: 65 kg

DRUGS (2)
  1. BUPROPION HCL [Suspect]
     Dosage: 150MG TWICE PER DAY
     Route: 048
     Dates: start: 20061020, end: 20061223
  2. OXYTETRACYCLINE [Concomitant]
     Indication: ROSACEA
     Dosage: 250MG TWICE PER DAY
     Route: 048
     Dates: start: 20060426, end: 20061014

REACTIONS (2)
  - BULIMIA NERVOSA [None]
  - PARANOIA [None]
